FAERS Safety Report 17133190 (Version 1)
Quarter: 2019Q4

REPORT INFORMATION
  Report Type: Spontaneous
  Country: US (occurrence: US)
  Receive Date: 20191209
  Receipt Date: 20191209
  Transmission Date: 20200122
  Serious: No
  Sender: FDA-Public Use
  Company Number: None

PATIENT
  Age: 65 Year
  Sex: Female

DRUGS (2)
  1. SIROLIMUS. [Concomitant]
     Active Substance: SIROLIMUS
  2. MYCOPHENOLIC [Suspect]
     Active Substance: MYCOPHENOLIC ACID
     Indication: LIVER TRANSPLANT
     Route: 048

REACTIONS (2)
  - Full blood count decreased [None]
  - Cough [None]

NARRATIVE: CASE EVENT DATE: 20191206
